FAERS Safety Report 20690272 (Version 2)
Quarter: 2024Q4

REPORT INFORMATION
  Report Type: Report from Study
  Country: US (occurrence: US)
  Receive Date: 20220408
  Receipt Date: 20241018
  Transmission Date: 20250114
  Serious: Yes (Other)
  Sender: AUROBINDO
  Company Number: US-MYLANLABS-2022M1025809

PATIENT
  Age: 66 Year
  Sex: Male
  Weight: 103 kg

DRUGS (6)
  1. WARFARIN [Suspect]
     Active Substance: WARFARIN
     Indication: Anticoagulant therapy
     Dosage: UNK
     Route: 065
  2. WARFARIN [Suspect]
     Active Substance: WARFARIN
     Dosage: UNK (THERAPY RESUMED)
     Route: 065
  3. ASPIRIN [Suspect]
     Active Substance: ASPIRIN
     Indication: Antiplatelet therapy
     Dosage: INITIAL DOSE NOT STATED
     Route: 065
  4. ASPIRIN [Suspect]
     Active Substance: ASPIRIN
     Dosage: 81 MILLIGRAM (INITIAL DOSE NOT STATED; LATER RECEIVED DOSE OF 81 MG)
     Route: 065
  5. ENOXAPARIN [Suspect]
     Active Substance: ENOXAPARIN
     Indication: Anticoagulant therapy
     Dosage: UNK
     Route: 065
  6. ENOXAPARIN [Suspect]
     Active Substance: ENOXAPARIN
     Indication: International normalised ratio abnormal
     Dosage: UNK, RESUMED
     Route: 065

REACTIONS (4)
  - Spinal cord infarction [Unknown]
  - Syncope [Unknown]
  - Haematoma muscle [Unknown]
  - Haemoglobin decreased [Unknown]
